FAERS Safety Report 6646088-9 (Version None)
Quarter: 2010Q1

REPORT INFORMATION
  Report Type: 
  Country: None (occurrence: None)
  Receive Date: 20100323
  Receipt Date: 20100317
  Transmission Date: 20100710
  Serious: Yes (Other)
  Sender: FDA-Public Use
  Company Number: PHHY2010DE16269

PATIENT
  Sex: Female

DRUGS (5)
  1. ZOMETA [Suspect]
     Dosage: 4 MG EVERY 4 WEEKS
     Route: 042
     Dates: start: 20081209
  2. ATACAND [Concomitant]
  3. NITROSPRAY [Concomitant]
     Dosage: UNK
  4. CISPLATIN [Concomitant]
     Dosage: UNK
     Dates: start: 20090121, end: 20090825
  5. GEMZAR [Concomitant]
     Dosage: UNK
     Dates: start: 20090121, end: 20090825

REACTIONS (6)
  - DIARRHOEA [None]
  - LYMPH NODE CANCER METASTATIC [None]
  - MALIGNANT NEOPLASM PROGRESSION [None]
  - METASTASES TO LUNG [None]
  - NAUSEA [None]
  - POLYNEUROPATHY [None]
